FAERS Safety Report 4974491-1 (Version None)
Quarter: 2006Q1

REPORT INFORMATION
  Report Type: 
  Country: None (occurrence: None)
  Receive Date: 20060227
  Receipt Date: 20060130
  Transmission Date: 20060701
  Serious: No
  Sender: FDA-Public Use
  Company Number: PHEH2006US01522

PATIENT
  Age: 89 Year
  Sex: Female

DRUGS (1)
  1. ENABLEX [Suspect]
     Indication: POLLAKIURIA
     Dosage: 15 MG, PRN; 15 MG, QD
     Dates: start: 20050301

REACTIONS (1)
  - CONSTIPATION [None]
